FAERS Safety Report 6078429-8 (Version None)
Quarter: 2009Q1

REPORT INFORMATION
  Report Type: 
  Country: None (occurrence: None)
  Receive Date: 20090212
  Receipt Date: 20090130
  Transmission Date: 20090719
  Serious: Yes (Hospitalization, Other)
  Sender: FDA-Public Use
  Company Number: 2008S1022065

PATIENT
  Age: 23 Year
  Sex: Female

DRUGS (9)
  1. CLOZAPINE [Suspect]
     Indication: SCHIZOPHRENIA
     Dosage: 75 MG;AT BEDTIME;ORAL
     Route: 048
     Dates: start: 20081114, end: 20090108
  2. DOCUSATE SODIUM [Concomitant]
  3. METHOCARBAMOL [Concomitant]
  4. FLUOXETINE [Concomitant]
  5. SEROQUEL [Concomitant]
  6. PROVIGIL [Concomitant]
  7. DEPAKOTE [Concomitant]
  8. TEMAZEPAM [Concomitant]
  9. M.V.I. [Concomitant]

REACTIONS (2)
  - DEHYDRATION [None]
  - GRANULOCYTOPENIA [None]
